FAERS Safety Report 7569067-6 (Version None)
Quarter: 2011Q2

REPORT INFORMATION
  Report Type: 
  Country: None (occurrence: None)
  Receive Date: 20110623
  Receipt Date: 20110622
  Transmission Date: 20111010
  Serious: Yes (Life-Threatening, Hospitalization)
  Sender: FDA-Public Use
  Company Number: US-B.I. PHARMACEUTICALS,INC./RIDGEFIELD-2011-BP-14768BP

PATIENT
  Age: 83 Year
  Sex: Male
  Weight: 99.8 kg

DRUGS (13)
  1. GLUCOVANCE [Concomitant]
     Indication: ROUTINE HEALTH MAINTENANCE
     Dosage: 1500 MG
  2. LIDODERM [Concomitant]
  3. ZOLOFT [Concomitant]
     Dosage: 20 MG
  4. VICODIN [Concomitant]
     Dosage: PRN
  5. CRESTOR [Concomitant]
     Indication: HYPERCHOLESTEROLAEMIA
     Dosage: 10 MG
  6. PRILOSEC [Concomitant]
     Dosage: 20 MG
  7. FLECAINIDE ACETATE [Concomitant]
     Indication: ARRHYTHMIA
     Dosage: 200 MG
  8. FLOMAX [Concomitant]
     Dosage: 0.4 MG
  9. VITAMIN B COMPLEX CAP [Concomitant]
  10. GLUCOSAMINE [Concomitant]
     Indication: ROUTINE HEALTH MAINTENANCE
  11. PRADAXA [Suspect]
     Indication: ATRIAL FIBRILLATION
     Dosage: 300 MG
     Route: 048
     Dates: start: 20110502, end: 20110601
  12. PREDNISONE [Concomitant]
     Dosage: 1 MG
  13. COLACE [Concomitant]
     Indication: ROUTINE HEALTH MAINTENANCE

REACTIONS (1)
  - GASTROINTESTINAL HAEMORRHAGE [None]
